FAERS Safety Report 8982640 (Version 3)
Quarter: 2013Q2

REPORT INFORMATION
  Report Type: Report from Study
  Country: US (occurrence: US)
  Receive Date: 20121221
  Receipt Date: 20130403
  Transmission Date: 20140414
  Serious: Yes (Hospitalization)
  Sender: FDA-Public Use
  Company Number: US-US-EMD SERONO, INC.-7183078

PATIENT
  Age: 44 Year
  Sex: Female
  Weight: 84 kg

DRUGS (1)
  1. REBIF [Suspect]
     Indication: MULTIPLE SCLEROSIS
     Route: 058
     Dates: start: 20121018

REACTIONS (2)
  - Endometriosis [Recovered/Resolved]
  - Pruritus [Unknown]
